FAERS Safety Report 6532890-0 (Version None)
Quarter: 2009Q4

REPORT INFORMATION
  Report Type: 
  Country: None (occurrence: None)
  Receive Date: 20091231
  Receipt Date: 20091217
  Transmission Date: 20100525
  Serious: Yes (Death)
  Sender: FDA-Public Use
  Company Number: 138

PATIENT
  Age: 49 Year
  Sex: Female

DRUGS (1)
  1. FAZACLO ODT [Suspect]
     Dosage: 25 MG PO DAILY
     Route: 048
     Dates: start: 20061201, end: 20070707

REACTIONS (5)
  - ARRHYTHMIA [None]
  - DIABETES MELLITUS [None]
  - ESSENTIAL HYPERTENSION [None]
  - MYOCARDIAL ISCHAEMIA [None]
  - OBESITY [None]
